FAERS Safety Report 9903788 (Version 1)
Quarter: 2014Q1

REPORT INFORMATION
  Report Type: Spontaneous
  Country: KR (occurrence: KR)
  Receive Date: 20140218
  Receipt Date: 20140218
  Transmission Date: 20141002
  Serious: Yes (Hospitalization, Other)
  Sender: FDA-Public Use
  Company Number: KR-JNJFOC-20140202576

PATIENT
  Sex: 0

DRUGS (2)
  1. ACETAMINOPHEN [Suspect]
     Indication: SUICIDE ATTEMPT
     Route: 065
  2. ACETAMINOPHEN [Suspect]
     Indication: PAIN
     Route: 065

REACTIONS (2)
  - Toxicity to various agents [Unknown]
  - Drug screen positive [Unknown]
